FAERS Safety Report 9478024 (Version 1)
Quarter: 2013Q3

REPORT INFORMATION
  Report Type: Spontaneous
  Country: CH (occurrence: CH)
  Receive Date: 20130827
  Receipt Date: 20130827
  Transmission Date: 20140515
  Serious: Yes (Other)
  Sender: FDA-Public Use
  Company Number: PHHY2013CH091996

PATIENT
  Age: 64 Year
  Sex: Female

DRUGS (1)
  1. ZOMETA [Suspect]
     Indication: PLASMA CELL MYELOMA
     Dosage: UNK UKN, UNK

REACTIONS (1)
  - Osteonecrosis of jaw [Unknown]
